FAERS Safety Report 9319215 (Version 2)
Quarter: 2013Q3

REPORT INFORMATION
  Report Type: Spontaneous
  Country: ES (occurrence: ES)
  Receive Date: 20130530
  Receipt Date: 20130712
  Transmission Date: 20140515
  Serious: Yes (Death)
  Sender: FDA-Public Use
  Company Number: ES-AMGEN-ESPSP2013036732

PATIENT
  Age: 61 Year
  Sex: Female
  Weight: 57 kg

DRUGS (6)
  1. PROLIA [Suspect]
     Indication: OSTEOPOROSIS
     Dosage: 60 MG, Q6MO
     Route: 058
     Dates: start: 20121130, end: 20121130
  2. ALGIDOL [Suspect]
     Dosage: UNK
     Route: 048
     Dates: start: 201212
  3. METHYLPREDNISOLONE [Concomitant]
     Dosage: UNK
     Route: 048
  4. METAMIZOL                          /06276702/ [Concomitant]
     Dosage: UNK UNK, AS NECESSARY
     Route: 048
  5. OMEPRAZOL                          /00661201/ [Concomitant]
     Dosage: UNK
     Route: 048
  6. LORAZEPAM [Concomitant]
     Dosage: UNK
     Route: 048

REACTIONS (2)
  - Acquired haemophilia [Fatal]
  - Haemorrhage [Fatal]
